FAERS Safety Report 19358840 (Version 3)
Quarter: 2021Q4

REPORT INFORMATION
  Report Type: Spontaneous
  Country: US (occurrence: US)
  Receive Date: 20210601
  Receipt Date: 20211115
  Transmission Date: 20220303
  Serious: No
  Sender: FDA-Public Use
  Company Number: US-BIOVITRUM-2021US4791

PATIENT
  Age: 52 Year
  Sex: Female

DRUGS (19)
  1. KINERET [Suspect]
     Active Substance: ANAKINRA
     Indication: Pericarditis
     Route: 058
     Dates: start: 20210510
  2. KINERET [Suspect]
     Active Substance: ANAKINRA
     Indication: Still^s disease
  3. GABAPANTEIN [Concomitant]
  4. ISONIAZID [Concomitant]
     Active Substance: ISONIAZID
  5. MAGNESIUM [Concomitant]
     Active Substance: MAGNESIUM
     Indication: Supplementation therapy
  6. SYNTHROID [Concomitant]
     Active Substance: LEVOTHYROXINE SODIUM
  7. ALVOPRO [Concomitant]
  8. IMMURAN [Concomitant]
  9. PLACINIL [Concomitant]
  10. OXIBUTYNIN [Concomitant]
  11. CALCIUM [Concomitant]
     Active Substance: CALCIUM
     Indication: Supplementation therapy
  12. VITAMINS [Concomitant]
     Active Substance: VITAMINS
  13. PREDNISONE [Concomitant]
     Active Substance: PREDNISONE
  14. BYSTOLIP [Concomitant]
  15. FOSAMAX [Concomitant]
     Active Substance: ALENDRONATE SODIUM
  16. ZINC SUPPLEMENTS [Concomitant]
     Indication: Supplementation therapy
  17. VITAMIN B6 [Concomitant]
     Active Substance: PYRIDOXINE HYDROCHLORIDE
  18. PROTONIX [Concomitant]
     Active Substance: PANTOPRAZOLE SODIUM
  19. ALDACTONE [Concomitant]
     Active Substance: SPIRONOLACTONE

REACTIONS (8)
  - Anxiety [Recovered/Resolved]
  - Hepatic enzyme abnormal [Recovered/Resolved]
  - Injection site reaction [Recovered/Resolved]
  - Injection site pain [Recovered/Resolved]
  - Incorrect dose administered [Unknown]
  - Product use complaint [Unknown]
  - Product dose omission issue [Unknown]
  - Off label use [Unknown]

NARRATIVE: CASE EVENT DATE: 20210510
